FAERS Safety Report 24091397 (Version 1)
Quarter: 2024Q3

REPORT INFORMATION
  Report Type: Spontaneous
  Country: US (occurrence: None)
  Receive Date: 20240713
  Receipt Date: 20240713
  Transmission Date: 20241016
  Serious: No
  Sender: Public
  Company Number: None

PATIENT
  Age: 70 Year
  Sex: Female
  Weight: 70.9 kg

DRUGS (3)
  1. FLUOROURACIL [Suspect]
     Active Substance: FLUOROURACIL
     Dates: end: 20240627
  2. LEUCOVORIN CALCIUM [Suspect]
     Active Substance: LEUCOVORIN CALCIUM
     Dates: end: 20240625
  3. ELOXATIN [Suspect]
     Active Substance: OXALIPLATIN
     Dates: end: 20240625

REACTIONS (2)
  - Hypokalaemia [None]
  - Diarrhoea [None]

NARRATIVE: CASE EVENT DATE: 20240708
